FAERS Safety Report 4449425-9 (Version None)
Quarter: 2004Q3

REPORT INFORMATION
  Report Type: 
  Country: None (occurrence: None)
  Receive Date: 20040914
  Receipt Date: 20040903
  Transmission Date: 20050211
  Serious: Yes (Hospitalization)
  Sender: FDA-Public Use
  Company Number: ZONI002020

PATIENT
  Age: 47 Year
  Sex: Female

DRUGS (3)
  1. EXCEGRAN (ZONISAMIDE) [Suspect]
     Indication: EPILEPSY
     Dosage: 200 MG, 2 IN 1 D, ORAL
     Route: 048
     Dates: start: 20040726, end: 20040817
  2. VALPROATE SODIUM [Concomitant]
  3. PLETAAL (CILOSTAZOL-L) [Concomitant]

REACTIONS (1)
  - STEVENS-JOHNSON SYNDROME [None]
